FAERS Safety Report 9271203 (Version 1)
Quarter: 2013Q2

REPORT INFORMATION
  Report Type: Report from Study
  Country: US (occurrence: US)
  Receive Date: 20130506
  Receipt Date: 20130506
  Transmission Date: 20140414
  Serious: Yes (Other)
  Sender: FDA-Public Use
  Company Number: US-MYLANLABS-2013S1006205

PATIENT
  Age: 44 Year
  Sex: Female
  Weight: 92.99 kg

DRUGS (13)
  1. CLOZAPINE TABLETS [Suspect]
     Route: 048
     Dates: start: 2004
  2. HALDOL [Concomitant]
     Dosage: OFF AND ON
  3. ABILIFY [Concomitant]
  4. CARBAMAZEPINE [Concomitant]
     Dates: start: 20130127
  5. ENALAPRIL [Concomitant]
  6. FLUPHENAZINE [Concomitant]
     Dosage: 2.5MG TAPER UP TO 5MG BID
  7. INSULIN [Concomitant]
  8. LAMOTRIGINE [Concomitant]
  9. LEVOTHYROXINE [Concomitant]
     Indication: PSYCHOGENIC SEIZURE
  10. METFORMIN [Concomitant]
  11. NORETHINDRONE /00044901/ [Concomitant]
  12. PROPRANOLOL [Concomitant]
  13. SIMVASTATIN [Concomitant]

REACTIONS (4)
  - Suicidal ideation [Not Recovered/Not Resolved]
  - Granulocytopenia [Not Recovered/Not Resolved]
  - Psychogenic seizure [Not Recovered/Not Resolved]
  - Dizziness [Not Recovered/Not Resolved]
